FAERS Safety Report 8813922 (Version 2)
Quarter: 2015Q3

REPORT INFORMATION
  Report Type: Report from Study
  Country: US (occurrence: US)
  Receive Date: 20120928
  Receipt Date: 20150702
  Transmission Date: 20151125
  Serious: Yes (Death, Hospitalization, Other)
  Sender: FDA-Public Use
  Company Number: US-ROCHE-1129536

PATIENT
  Age: 46 Year
  Sex: Female

DRUGS (22)
  1. HERCEPTIN [Suspect]
     Active Substance: TRASTUZUMAB
     Indication: MALIGNANT NEOPLASM OF UTERINE ADNEXA
     Dosage: FIRST MAINTENANCE DOSE
     Route: 042
     Dates: start: 20040519
  2. TYLENOL [Concomitant]
     Active Substance: ACETAMINOPHEN
     Route: 065
  3. TOPOTECAN [Concomitant]
     Active Substance: TOPOTECAN\TOPOTECAN HYDROCHLORIDE
     Route: 065
  4. ZITHROMAX [Concomitant]
     Active Substance: AZITHROMYCIN DIHYDRATE
  5. HERCEPTIN [Suspect]
     Active Substance: TRASTUZUMAB
     Indication: METASTASES TO LUNG
     Dosage: SECOND MAINTENANCE DOSE
     Route: 042
     Dates: start: 20040526
  6. HERCEPTIN [Suspect]
     Active Substance: TRASTUZUMAB
     Dosage: FOURTH MAINTENANCE DOSE
     Route: 042
     Dates: start: 20040620
  7. ALOXI [Concomitant]
     Active Substance: PALONOSETRON HYDROCHLORIDE
     Route: 042
  8. DECADRON [Concomitant]
     Active Substance: DEXAMETHASONE
     Route: 042
  9. OXYIR [Concomitant]
     Active Substance: OXYCODONE HYDROCHLORIDE
  10. XOPENEX [Concomitant]
     Active Substance: LEVALBUTEROL HYDROCHLORIDE
  11. HERCEPTIN [Suspect]
     Active Substance: TRASTUZUMAB
     Dosage: FIFTH MAINTENANCE DOSE
     Route: 042
     Dates: start: 20040707
  12. HERCEPTIN [Suspect]
     Active Substance: TRASTUZUMAB
     Dosage: SEVENTH MAINTENANCE DOSE
     Route: 042
  13. HYCAMTIN [Concomitant]
     Active Substance: TOPOTECAN HYDROCHLORIDE
     Route: 042
  14. HERCEPTIN [Suspect]
     Active Substance: TRASTUZUMAB
     Dosage: SIXTH MAINTENANCE DOSE
     Route: 042
     Dates: start: 20040714
  15. DECADRON [Concomitant]
     Active Substance: DEXAMETHASONE
     Route: 042
  16. KYTRIL [Concomitant]
     Active Substance: GRANISETRON HYDROCHLORIDE
  17. DOXIL [Concomitant]
     Active Substance: DOXORUBICIN HYDROCHLORIDE
     Route: 065
  18. OXYFAST [Concomitant]
     Active Substance: OXYCODONE
  19. TAGAMET [Concomitant]
     Active Substance: CIMETIDINE
     Dosage: 300*50 CC NARMAL SALINE(NS)
     Route: 065
  20. HERCEPTIN [Suspect]
     Active Substance: TRASTUZUMAB
     Indication: OVARIAN CANCER
     Dosage: LOADING AND MAINTENANCE DOSE
     Route: 042
     Dates: start: 20040512
  21. HERCEPTIN [Suspect]
     Active Substance: TRASTUZUMAB
     Dosage: THIRD MAINTENANCE DOSE
     Route: 042
     Dates: start: 20040603
  22. BENADRYL [Concomitant]
     Active Substance: DIPHENHYDRAMINE HYDROCHLORIDE
     Route: 065

REACTIONS (22)
  - Upper respiratory tract congestion [Unknown]
  - Dyspnoea [Unknown]
  - Off label use [Unknown]
  - Oedema peripheral [Unknown]
  - Dysuria [Unknown]
  - Flank pain [Unknown]
  - Hypotension [Unknown]
  - Pain [Unknown]
  - Fatigue [Unknown]
  - Peripheral swelling [Unknown]
  - Death [Fatal]
  - Throat irritation [Unknown]
  - Dry mouth [Unknown]
  - Abdominal distension [Unknown]
  - Nausea [Unknown]
  - Pain [Unknown]
  - Dry throat [Unknown]
  - Dizziness [Unknown]
  - Pneumonia [Unknown]
  - Pancytopenia [Unknown]
  - Anaemia [Unknown]
  - Pyrexia [Unknown]

NARRATIVE: CASE EVENT DATE: 20040618
